FAERS Safety Report 19165161 (Version 1)
Quarter: 2021Q2

REPORT INFORMATION
  Report Type: Report from Study
  Country: TH (occurrence: TH)
  Receive Date: 20210421
  Receipt Date: 20210421
  Transmission Date: 20210717
  Serious: Yes (Other)
  Sender: FDA-Public Use
  Company Number: NVSC2021TH002041

PATIENT
  Sex: Male

DRUGS (2)
  1. ENTRESTO [Suspect]
     Active Substance: SACUBITRIL\VALSARTAN
     Dosage: 0.5 DF (50 MG), BID (AFTER MEAL MORNING AND EVENING)
     Route: 048
  2. ENTRESTO [Suspect]
     Active Substance: SACUBITRIL\VALSARTAN
     Indication: CARDIAC FAILURE
     Dosage: 0.5 DF (100 MG), BID (AFTER MEAL MORNING AND EVENING)
     Route: 048

REACTIONS (10)
  - Cardiac failure congestive [Unknown]
  - Aortic valve incompetence [Unknown]
  - Product prescribing error [Unknown]
  - Congestive cardiomyopathy [Unknown]
  - Left ventricular hypertrophy [Unknown]
  - Low density lipoprotein increased [Unknown]
  - Underdose [Unknown]
  - Wrong technique in product usage process [Unknown]
  - Fatigue [Unknown]
  - Cardiovascular disorder [Unknown]
